FAERS Safety Report 14511312 (Version 1)
Quarter: 2018Q1

REPORT INFORMATION
  Report Type: Spontaneous
  Country: DE (occurrence: DE)
  Receive Date: 20180209
  Receipt Date: 20180209
  Transmission Date: 20180509
  Serious: Yes (Hospitalization)
  Sender: FDA-Public Use
  Company Number: DE-GLAXOSMITHKLINE-DE2018GSK022354

PATIENT
  Age: 58 Year
  Sex: Female

DRUGS (1)
  1. NUCALA [Suspect]
     Active Substance: MEPOLIZUMAB
     Indication: PRODUCT USED FOR UNKNOWN INDICATION
     Dosage: 100 MG, U
     Route: 058

REACTIONS (7)
  - Throat tightness [Unknown]
  - Swollen tongue [Unknown]
  - Adverse drug reaction [Unknown]
  - Dizziness [Unknown]
  - Paraesthesia oral [Unknown]
  - Rash [Unknown]
  - Formication [Unknown]
